FAERS Safety Report 19748827 (Version 1)
Quarter: 2021Q3

REPORT INFORMATION
  Report Type: Report from Study
  Country: HN (occurrence: HN)
  Receive Date: 20210826
  Receipt Date: 20210826
  Transmission Date: 20211014
  Serious: Yes (Other)
  Sender: FDA-Public Use
  Company Number: NVSC2021HN187031

PATIENT
  Age: 35 Year
  Sex: Female
  Weight: 52.6 kg

DRUGS (7)
  1. MELEX [Concomitant]
     Active Substance: MEXAZOLAM
     Indication: ANXIETY
     Dosage: 150 MG, QD
     Route: 065
  2. ATENOL N [Concomitant]
     Indication: HYPERTENSION
     Dosage: 50 MG, QD (7 YEARS AGO)
     Route: 065
  3. IRBESARTAN. [Suspect]
     Active Substance: IRBESARTAN
     Indication: PRODUCT USED FOR UNKNOWN INDICATION
     Dosage: 150 MG, QD (4 YEARS AGO)
     Route: 065
  4. VITAMIN C [Concomitant]
     Active Substance: ASCORBIC ACID
     Indication: IMMUNODEFICIENCY
     Dosage: 200 MG
     Route: 065
     Dates: start: 20210606
  5. NPH INSULIN [Concomitant]
     Active Substance: INSULIN BEEF
     Indication: DIABETES MELLITUS
     Dosage: 40U DURING MORNING AND 30U AT NIGHT.
     Route: 065
     Dates: start: 202008
  6. NOZEPAM [Concomitant]
     Active Substance: OXAZEPAM
     Indication: OXYGEN THERAPY
     Dosage: 800 MG, QD
     Route: 065
     Dates: start: 20210706
  7. CARBAMAZEPINE. [Concomitant]
     Active Substance: CARBAMAZEPINE
     Indication: NERVE INJURY
     Dosage: 200 MG, QD
     Route: 065
     Dates: start: 20210706

REACTIONS (3)
  - Pneumonia [Unknown]
  - COVID-19 [Unknown]
  - Back pain [Unknown]

NARRATIVE: CASE EVENT DATE: 202009
